FAERS Safety Report 5340434-4 (Version None)
Quarter: 2007Q2

REPORT INFORMATION
  Report Type: 
  Country: None (occurrence: None)
  Receive Date: 20070531
  Receipt Date: 20070328
  Transmission Date: 20071010
  Serious: Yes (Other)
  Sender: FDA-Public Use
  Company Number: AU-JNJFOC-20070505798

PATIENT
  Age: 41 Year
  Sex: Male

DRUGS (1)
  1. TRAMADOL HCL [Suspect]
     Indication: DRUG USE FOR UNKNOWN INDICATION
     Route: 048

REACTIONS (11)
  - DIZZINESS [None]
  - DRY MOUTH [None]
  - ERECTILE DYSFUNCTION [None]
  - HYPERHIDROSIS [None]
  - NAUSEA [None]
  - PHOTOPSIA [None]
  - SEDATION [None]
  - TREMOR [None]
  - URINARY HESITATION [None]
  - VISION BLURRED [None]
  - VOMITING [None]
